FAERS Safety Report 9462269 (Version 1)
Quarter: 2013Q3

REPORT INFORMATION
  Report Type: Spontaneous
  Country: US (occurrence: US)
  Receive Date: 20130816
  Receipt Date: 20130816
  Transmission Date: 20140515
  Serious: Yes (Other)
  Sender: FDA-Public Use
  Company Number: US-JNJFOC-20130801885

PATIENT
  Age: 76 Year
  Sex: Male

DRUGS (28)
  1. MOTRIN IB [Suspect]
     Route: 065
  2. MOTRIN IB [Suspect]
     Indication: PRODUCT USED FOR UNKNOWN INDICATION
     Route: 065
  3. GABAPENTIN [Concomitant]
     Indication: NEURALGIA
     Route: 065
  4. HUMIRA [Concomitant]
     Indication: PRODUCT USED FOR UNKNOWN INDICATION
     Route: 065
  5. NEXIUM [Concomitant]
     Indication: PRODUCT USED FOR UNKNOWN INDICATION
     Route: 065
  6. LEXAPRO [Concomitant]
     Indication: CARDIAC DISORDER
     Route: 065
  7. BISOPROLOL FUMARATE [Concomitant]
     Indication: CARDIAC DISORDER
     Route: 065
  8. FISH OIL [Concomitant]
     Indication: CARDIAC DISORDER
     Route: 065
  9. PLAVIX [Concomitant]
     Indication: CARDIAC DISORDER
     Route: 065
  10. ACETYLSALICYLIC ACID [Concomitant]
     Indication: CARDIAC DISORDER
     Route: 065
  11. NIASPAN [Concomitant]
     Indication: CARDIAC DISORDER
     Route: 065
  12. LIPITOR [Concomitant]
     Indication: CARDIAC DISORDER
     Route: 065
  13. DAILY VITAMIN [Concomitant]
     Indication: PRODUCT USED FOR UNKNOWN INDICATION
     Route: 065
  14. GLUCOTROL XL [Concomitant]
     Indication: DIABETES MELLITUS
     Route: 065
  15. ASCORBIC ACID [Concomitant]
     Indication: PRODUCT USED FOR UNKNOWN INDICATION
     Route: 065
  16. ARAVA [Concomitant]
     Indication: RHEUMATOID ARTHRITIS
     Route: 065
  17. VICODIN [Concomitant]
     Indication: BACK PAIN
     Dosage: AS REQUIRED
     Route: 065
  18. VICODIN [Concomitant]
     Indication: RHEUMATOID ARTHRITIS
     Dosage: AS REQUIRED
     Route: 065
  19. LAXATIVES [Concomitant]
     Indication: PRODUCT USED FOR UNKNOWN INDICATION
     Dosage: AS REQUIRED
     Route: 065
  20. AMBIEN [Concomitant]
     Indication: SLEEP DISORDER THERAPY
     Dosage: AS REQUIRED
     Route: 065
  21. VITAMIN D [Concomitant]
     Indication: PRODUCT USED FOR UNKNOWN INDICATION
     Route: 065
  22. GARLIC PILL [Concomitant]
     Indication: PRODUCT USED FOR UNKNOWN INDICATION
     Dosage: ONE TABLET
     Route: 065
  23. CALCIUM [Concomitant]
     Indication: PRODUCT USED FOR UNKNOWN INDICATION
     Route: 065
  24. SINGULAIR [Concomitant]
     Indication: MULTIPLE ALLERGIES
     Route: 065
  25. SANCTURA [Concomitant]
     Indication: PROSTATOMEGALY
     Route: 065
  26. SANCTURA [Concomitant]
     Indication: BLADDER DISORDER
     Route: 065
  27. UROXATRAL [Concomitant]
     Indication: PROSTATOMEGALY
     Route: 065
  28. UROXATRAL [Concomitant]
     Indication: BLADDER DISORDER
     Route: 065

REACTIONS (4)
  - Laceration [Not Recovered/Not Resolved]
  - Back pain [Unknown]
  - Neuralgia [Unknown]
  - Renal disorder [Unknown]
